FAERS Safety Report 5213938-2 (Version None)
Quarter: 2007Q1

REPORT INFORMATION
  Report Type: 
  Country: None (occurrence: None)
  Receive Date: 20070110
  Receipt Date: 20070104
  Transmission Date: 20070707
  Serious: Yes (Death, Hospitalization)
  Sender: FDA-Public Use
  Company Number: 2007P1000009

PATIENT
  Age: 43 Year
  Sex: Male

DRUGS (2)
  1. BUSULFAN (BUSULFAN) [Suspect]
     Indication: ACUTE MYELOID LEUKAEMIA
     Dosage: 2MG/KG
     Dates: start: 20061123, end: 20061124
  2. FLUDARABINE [Concomitant]

REACTIONS (4)
  - BRAIN STEM HAEMORRHAGE [None]
  - CYSTITIS HAEMORRHAGIC [None]
  - GASTROINTESTINAL HAEMORRHAGE [None]
  - PULMONARY HAEMORRHAGE [None]
